FAERS Safety Report 9354797 (Version 2)
Quarter: 2013Q3

REPORT INFORMATION
  Report Type: Report from Study
  Country: AU (occurrence: AU)
  Receive Date: 20130619
  Receipt Date: 20130814
  Transmission Date: 20140515
  Serious: Yes (Hospitalization, Other)
  Sender: FDA-Public Use
  Company Number: AU-ROCHE-1233949

PATIENT
  Age: 54 Year
  Sex: Male

DRUGS (4)
  1. MYCOPHENOLATE MOFETIL [Suspect]
     Indication: RENAL TRANSPLANT
     Route: 065
     Dates: start: 20061121
  2. TACROLIMUS [Suspect]
     Indication: RENAL TRANSPLANT
     Route: 065
     Dates: start: 20070228
  3. BLINDED BELATACEPT [Suspect]
     Indication: RENAL TRANSPLANT
     Route: 042
     Dates: start: 20061121, end: 20070213
  4. PREDNISONE [Suspect]
     Indication: RENAL TRANSPLANT
     Route: 065
     Dates: start: 20061124

REACTIONS (4)
  - Metastatic malignant melanoma [Not Recovered/Not Resolved]
  - Malignant melanoma [Unknown]
  - Squamous cell carcinoma of skin [Recovered/Resolved]
  - Malignant pleural effusion [Recovered/Resolved]
